FAERS Safety Report 11566197 (Version 1)
Quarter: 2015Q3

REPORT INFORMATION
  Report Type: Spontaneous
  Country: US (occurrence: US)
  Receive Date: 20150916
  Receipt Date: 20150916
  Transmission Date: 20151125
  Serious: No
  Sender: FDA-Public Use
  Company Number: US-ELI_LILLY_AND_COMPANY-US200905005417

PATIENT
  Sex: Female

DRUGS (4)
  1. GINGER. [Concomitant]
     Active Substance: GINGER
  2. FORTEO [Suspect]
     Active Substance: TERIPARATIDE
     Dosage: UNK, UNK
     Dates: start: 20090501, end: 20090502
  3. FORTEO [Suspect]
     Active Substance: TERIPARATIDE
     Dates: start: 20090523
  4. ATENOLOL. [Concomitant]
     Active Substance: ATENOLOL

REACTIONS (29)
  - Disturbance in attention [Not Recovered/Not Resolved]
  - Motion sickness [Not Recovered/Not Resolved]
  - Paranoia [Unknown]
  - Fatigue [Unknown]
  - Cough [Unknown]
  - Decreased interest [Unknown]
  - Depressed level of consciousness [Unknown]
  - Limb discomfort [Not Recovered/Not Resolved]
  - Anxiety [Not Recovered/Not Resolved]
  - Pain in extremity [Not Recovered/Not Resolved]
  - Agitation [Not Recovered/Not Resolved]
  - Nausea [Not Recovered/Not Resolved]
  - Head discomfort [Not Recovered/Not Resolved]
  - Feeling abnormal [Unknown]
  - Dizziness [Not Recovered/Not Resolved]
  - Exercise lack of [Not Recovered/Not Resolved]
  - Abdominal discomfort [Not Recovered/Not Resolved]
  - Malaise [Not Recovered/Not Resolved]
  - Muscular weakness [Unknown]
  - Headache [Not Recovered/Not Resolved]
  - Stress [Unknown]
  - Chills [Unknown]
  - Vital capacity decreased [Unknown]
  - Heart rate increased [Not Recovered/Not Resolved]
  - Heart rate irregular [Not Recovered/Not Resolved]
  - Dyspnoea [Not Recovered/Not Resolved]
  - Palpitations [Not Recovered/Not Resolved]
  - Arthralgia [Not Recovered/Not Resolved]
  - Sleep disorder [Not Recovered/Not Resolved]

NARRATIVE: CASE EVENT DATE: 2009
